FAERS Safety Report 9330411 (Version 1)
Quarter: 2013Q2

REPORT INFORMATION
  Report Type: Spontaneous
  Country: US (occurrence: US)
  Receive Date: 20130605
  Receipt Date: 20130605
  Transmission Date: 20140414
  Serious: No
  Sender: FDA-Public Use
  Company Number: US-BIOGENIDEC-2013BI049742

PATIENT
  Sex: Female

DRUGS (1)
  1. AVONEX [Suspect]
     Indication: MULTIPLE SCLEROSIS
     Route: 030
     Dates: start: 20050516

REACTIONS (10)
  - Gait disturbance [Unknown]
  - Sleep disorder [Unknown]
  - Fall [Unknown]
  - Injection site haemorrhage [Unknown]
  - Fatigue [Unknown]
  - Chills [Unknown]
  - Arthralgia [Unknown]
  - Pain [Unknown]
  - Asthenia [Unknown]
  - Confusional state [Unknown]
